FAERS Safety Report 4950515-2 (Version None)
Quarter: 2006Q1

REPORT INFORMATION
  Report Type: 
  Country: None (occurrence: None)
  Receive Date: 20060322
  Receipt Date: 20060317
  Transmission Date: 20060701
  Serious: Yes (Hospitalization)
  Sender: FDA-Public Use
  Company Number: PT-GLAXOSMITHKLINE-B0416295A

PATIENT
  Age: 38 Year
  Sex: Male

DRUGS (1)
  1. ZENTEL 400 [Suspect]
     Indication: INFECTION PARASITIC
     Dosage: 400MG SINGLE DOSE
     Route: 048
     Dates: start: 20060128, end: 20060128

REACTIONS (3)
  - ABDOMINAL PAIN [None]
  - DIARRHOEA [None]
  - PAIN [None]
